FAERS Safety Report 4329898-2 (Version None)
Quarter: 2004Q1

REPORT INFORMATION
  Report Type: 
  Country: None (occurrence: None)
  Receive Date: 20040329
  Receipt Date: 20040312
  Transmission Date: 20041129
  Serious: Yes (Other)
  Sender: FDA-Public Use
  Company Number: 2003116227

PATIENT
  Age: 72 Year
  Sex: Female
  Weight: 52.3 kg

DRUGS (6)
  1. CARDENALIN (DOXAZOSIN) [Suspect]
     Indication: HYPERTENSION
     Dosage: 4 MG (DAILY), ORAL
     Route: 048
     Dates: start: 20031017
  2. TIZANIDINE HCL [Concomitant]
  3. MECOBALAMIN (MECOBALAMIN) [Concomitant]
  4. HERBAL ONT [Concomitant]
  5. FELBINAC (FELBINAC) [Concomitant]
  6. CANDESARTAN CILEXETIL (CANDESARTAN CILEXETIL) [Concomitant]

REACTIONS (3)
  - BLOOD PRESSURE DIASTOLIC INCREASED [None]
  - BLOOD PRESSURE SYSTOLIC INCREASED [None]
  - SHOCK [None]
